FAERS Safety Report 8841338 (Version 1)
Quarter: 2012Q4

REPORT INFORMATION
  Report Type: 
  Country: JP (occurrence: JP)
  Receive Date: 20121015
  Receipt Date: 20121015
  Transmission Date: 20130627
  Serious: Yes (Other)
  Sender: FDA-Public Use
  Company Number: JP-PFIZER INC-2012252565

PATIENT
  Age: 48 Year
  Sex: Female

DRUGS (1)
  1. JZOLOFT [Suspect]
     Dosage: 25 mg, 1x/day
     Route: 048

REACTIONS (3)
  - Gastrointestinal tube insertion [Unknown]
  - Catheter site pain [Recovered/Resolved]
  - Feeling hot [Unknown]
